FAERS Safety Report 15552749 (Version 1)
Quarter: 2018Q4

REPORT INFORMATION
  Report Type: Report from Study
  Country: AR (occurrence: AR)
  Receive Date: 20181025
  Receipt Date: 20181025
  Transmission Date: 20190205
  Serious: Yes (Death, Hospitalization, Other)
  Sender: FDA-Public Use
  Company Number: AR-ELI_LILLY_AND_COMPANY-AR201809007954

PATIENT
  Age: 78 Year
  Sex: Female

DRUGS (4)
  1. CARBIDOPA. [Concomitant]
     Active Substance: CARBIDOPA
     Indication: PARKINSON^S DISEASE
  2. OMEPRAZOLE. [Concomitant]
     Active Substance: OMEPRAZOLE
     Indication: GASTRIC DISORDER
  3. TERIPARATIDE [Suspect]
     Active Substance: TERIPARATIDE
     Indication: PRODUCT USED FOR UNKNOWN INDICATION
     Dosage: UNK
     Route: 065
     Dates: start: 20170316
  4. LEVODOPA [Concomitant]
     Active Substance: LEVODOPA
     Indication: PARKINSON^S DISEASE

REACTIONS (9)
  - Pulmonary oedema [Unknown]
  - Gastrointestinal injury [Unknown]
  - Colon injury [Unknown]
  - Hypotension [Unknown]
  - Gastrointestinal haemorrhage [Fatal]
  - Renal failure [Unknown]
  - Cardiopulmonary failure [Fatal]
  - Strangulated hernia [Unknown]
  - Intestinal haemorrhage [Unknown]
